FAERS Safety Report 18103405 (Version 4)
Quarter: 2020Q4

REPORT INFORMATION
  Report Type: Spontaneous
  Country: US (occurrence: US)
  Receive Date: 20200803
  Receipt Date: 20201020
  Transmission Date: 20210113
  Serious: No
  Sender: FDA-Public Use
  Company Number: US-PFIZER INC-2020291739

PATIENT
  Age: 58 Year
  Sex: Male
  Weight: 94.35 kg

DRUGS (4)
  1. VYNDAQEL [Suspect]
     Active Substance: TAFAMIDIS MEGLUMINE
     Dosage: 20 MG, 4X/DAY (20MG 1 CAPSULE BY MOUTH 4 TIMES A DAY)
     Route: 048
     Dates: start: 201909
  2. VYNDAQEL [Suspect]
     Active Substance: TAFAMIDIS MEGLUMINE
     Dosage: 20 MG, 4X/DAY
     Dates: start: 20191001
  3. VYNDAQEL [Suspect]
     Active Substance: TAFAMIDIS MEGLUMINE
     Indication: AMYLOIDOSIS
     Dosage: 80 MG
  4. VYNDAQEL [Suspect]
     Active Substance: TAFAMIDIS MEGLUMINE
     Dosage: UNK

REACTIONS (5)
  - Drug ineffective for unapproved indication [Unknown]
  - Soliloquy [Unknown]
  - Weight fluctuation [Unknown]
  - Peripheral swelling [Unknown]
  - Off label use [Unknown]
